FAERS Safety Report 7571521-8 (Version None)
Quarter: 2011Q2

REPORT INFORMATION
  Report Type: 
  Country: None (occurrence: None)
  Receive Date: 20110624
  Receipt Date: 20110613
  Transmission Date: 20111010
  Serious: Yes (Hospitalization, Other)
  Sender: FDA-Public Use
  Company Number: US-ELI_LILLY_AND_COMPANY-US200605006401

PATIENT
  Sex: Female

DRUGS (3)
  1. HUMALOG [Suspect]
     Dosage: UNK, AS NEEDED
     Dates: start: 19990401
  2. HUMALOG [Suspect]
     Indication: TYPE 1 DIABETES MELLITUS
     Dosage: UNK, AS NEEDED
     Dates: start: 19990401
  3. LANTUS [Concomitant]
     Indication: DIABETES MELLITUS
     Dosage: 17 U, EACH EVENING

REACTIONS (2)
  - UTERINE LEIOMYOMA [None]
  - BLOOD GLUCOSE INCREASED [None]
